FAERS Safety Report 10191284 (Version 1)
Quarter: 2014Q2

REPORT INFORMATION
  Report Type: Spontaneous
  Country: US (occurrence: None)
  Receive Date: 20140522
  Receipt Date: 20140522
  Transmission Date: 20141212
  Serious: No
  Sender: FDA-Public Use
  Company Number: None

PATIENT
  Age: 15 Year
  Sex: Female

DRUGS (1)
  1. METHYLPHENIDATE 36 KREMERS URBAN PHARMACEUTICALS [Suspect]
     Indication: NARCOLEPSY
     Dosage: 1, ONCE DAILY, TAKEN BY MOUTH
     Dates: start: 20131202, end: 20131230

REACTIONS (4)
  - Dizziness [None]
  - Drug effect decreased [None]
  - Fall [None]
  - Product substitution issue [None]
